FAERS Safety Report 18507093 (Version 1)
Quarter: 2020Q4

REPORT INFORMATION
  Report Type: Other
  Country: CN (occurrence: CN)
  Receive Date: 20201116
  Receipt Date: 20201116
  Transmission Date: 20210114
  Serious: Yes (Hospitalization, Other)
  Sender: FDA-Public Use
  Company Number: CN-ASTELLAS-2020US039893

PATIENT
  Age: 86 Year
  Sex: Male
  Weight: 56 kg

DRUGS (8)
  1. TETRACYCLINE [Suspect]
     Active Substance: TETRACYCLINE
     Indication: INFECTION PROPHYLAXIS
     Route: 041
     Dates: start: 20200930, end: 20200930
  2. TETRACYCLINE [Suspect]
     Active Substance: TETRACYCLINE
     Route: 041
     Dates: start: 20201001, end: 20201009
  3. SULPERAZONE [Suspect]
     Active Substance: CEFOPERAZONE SODIUM\SULBACTAM SODIUM
     Indication: INFECTION PROPHYLAXIS
     Route: 041
     Dates: start: 20200917, end: 20201005
  4. SODIUM CHLORIDE. [Concomitant]
     Active Substance: SODIUM CHLORIDE
     Indication: PRODUCT USED FOR UNKNOWN INDICATION
     Route: 041
     Dates: start: 20200917, end: 20201005
  5. SODIUM CHLORIDE. [Concomitant]
     Active Substance: SODIUM CHLORIDE
     Route: 041
     Dates: start: 20200927, end: 20201008
  6. MYCAMINE [Suspect]
     Active Substance: MICAFUNGIN SODIUM
     Indication: RESPIRATORY TRACT INFECTION FUNGAL
     Route: 041
     Dates: start: 20200927, end: 20201008
  7. SODIUM CHLORIDE. [Concomitant]
     Active Substance: SODIUM CHLORIDE
     Route: 041
     Dates: start: 20201001, end: 20201009
  8. SODIUM CHLORIDE. [Concomitant]
     Active Substance: SODIUM CHLORIDE
     Route: 041
     Dates: start: 20200930, end: 20200930

REACTIONS (7)
  - Platelet count decreased [Not Recovered/Not Resolved]
  - Pneumonitis [Unknown]
  - Condition aggravated [Unknown]
  - Pneumonia pseudomonal [Unknown]
  - Drug ineffective [Unknown]
  - Pneumonia acinetobacter [Unknown]
  - Haemoglobin decreased [Not Recovered/Not Resolved]

NARRATIVE: CASE EVENT DATE: 20200930
